FAERS Safety Report 9290100 (Version 1)
Quarter: 2013Q2

REPORT INFORMATION
  Report Type: Spontaneous
  Country: US (occurrence: None)
  Receive Date: 20130514
  Receipt Date: 20130514
  Transmission Date: 20140414
  Serious: No
  Sender: FDA-Public Use
  Company Number: None

PATIENT
  Age: 31 Year
  Sex: Male

DRUGS (3)
  1. CEFTRIAXONE [Suspect]
     Indication: GONORRHOEA
     Route: 030
     Dates: start: 20130513
  2. CEFTRIAXONE [Suspect]
     Route: 030
     Dates: start: 20130513
  3. AZITHROMYCIN [Suspect]
     Route: 048

REACTIONS (2)
  - Pruritus [None]
  - Urticaria [None]
